FAERS Safety Report 18526900 (Version 1)
Quarter: 2020Q4

REPORT INFORMATION
  Report Type: Spontaneous
  Country: JP (occurrence: JP)
  Receive Date: 20201120
  Receipt Date: 20201120
  Transmission Date: 20210114
  Serious: Yes (Other)
  Sender: FDA-Public Use
  Company Number: JP-ELI_LILLY_AND_COMPANY-JP202011004633

PATIENT
  Age: 70 Year
  Sex: Male

DRUGS (5)
  1. LEVOFOLINATE CALCIUM [Concomitant]
     Active Substance: LEVOLEUCOVORIN CALCIUM
     Indication: RECTOSIGMOID CANCER RECURRENT
     Dosage: UNK
     Dates: start: 201912
  2. CYRAMZA [Suspect]
     Active Substance: RAMUCIRUMAB
     Indication: RECTOSIGMOID CANCER RECURRENT
     Dosage: 10 MG/KG, OTHER
     Route: 041
     Dates: start: 201912, end: 2020
  3. CYRAMZA [Suspect]
     Active Substance: RAMUCIRUMAB
     Dosage: 8 MG/KG, OTHER
     Dates: start: 2020
  4. FLUOROURACIL. [Concomitant]
     Active Substance: FLUOROURACIL
     Indication: COLON CANCER RECURRENT
     Dosage: UNK
     Dates: start: 201912
  5. IRINOTECAN [Concomitant]
     Active Substance: IRINOTECAN
     Indication: COLON CANCER RECURRENT
     Dosage: UNK
     Dates: start: 201912

REACTIONS (4)
  - Ileus paralytic [Recovered/Resolved]
  - Proteinuria [Unknown]
  - Peritonitis [Unknown]
  - Anastomotic complication [Unknown]
